FAERS Safety Report 7383217-6 (Version None)
Quarter: 2011Q1

REPORT INFORMATION
  Report Type: 
  Country: None (occurrence: None)
  Receive Date: 20110330
  Receipt Date: 20110324
  Transmission Date: 20110831
  Serious: Yes (Death)
  Sender: FDA-Public Use
  Company Number: US-US-EMD SERONO, INC.-231687J10USA

PATIENT
  Sex: Male
  Weight: 84 kg

DRUGS (2)
  1. UNSPECIFIED MEDICATIONS [Concomitant]
  2. REBIF [Suspect]
     Indication: MULTIPLE SCLEROSIS
     Route: 065
     Dates: start: 20040722, end: 20091219

REACTIONS (2)
  - ASTHENIA [None]
  - MYOCARDIAL INFARCTION [None]
